FAERS Safety Report 5782878-2 (Version None)
Quarter: 2008Q2

REPORT INFORMATION
  Report Type: 
  Country: None (occurrence: None)
  Receive Date: 20080624
  Receipt Date: 20080618
  Transmission Date: 20081010
  Serious: Yes (Hospitalization)
  Sender: FDA-Public Use
  Company Number: FR-SP-2008-02034

PATIENT
  Age: 68 Year
  Sex: Male

DRUGS (2)
  1. IMMUCYST [Suspect]
     Indication: CARCINOMA IN SITU OF BLADDER
     Route: 065
     Dates: end: 20080521
  2. IMMUCYST [Suspect]
     Route: 065
     Dates: end: 20080521

REACTIONS (6)
  - DISORIENTATION [None]
  - DISSEMINATED TUBERCULOSIS [None]
  - GENERAL PHYSICAL HEALTH DETERIORATION [None]
  - RENAL CANCER STAGE I [None]
  - RENAL FAILURE [None]
  - RENAL VEIN THROMBOSIS [None]
